FAERS Safety Report 6670429-X (Version None)
Quarter: 2010Q2

REPORT INFORMATION
  Report Type: 
  Country: None (occurrence: None)
  Receive Date: 20100407
  Receipt Date: 20100330
  Transmission Date: 20101027
  Serious: Yes (Hospitalization, Other)
  Sender: FDA-Public Use
  Company Number: 2009BI042366

PATIENT
  Age: 43 Year
  Sex: Female
  Weight: 99 kg

DRUGS (1)
  1. TYSABRI [Suspect]
     Indication: MULTIPLE SCLEROSIS
     Route: 042
     Dates: start: 20081009, end: 20100301

REACTIONS (18)
  - ABASIA [None]
  - ASPIRATION [None]
  - ASTHENIA [None]
  - BACTERIAL TEST POSITIVE [None]
  - BALANCE DISORDER [None]
  - CATHETER SITE INFECTION [None]
  - DEHYDRATION [None]
  - DYSPHAGIA [None]
  - FALL [None]
  - LARYNGITIS [None]
  - LOWER LIMB FRACTURE [None]
  - MUSCLE SPASTICITY [None]
  - PERONEAL NERVE PALSY [None]
  - PNEUMONIA ASPIRATION [None]
  - PYREXIA [None]
  - TACHYCARDIA [None]
  - URINARY TRACT INFECTION [None]
  - WHITE BLOOD CELL COUNT INCREASED [None]
